FAERS Safety Report 8477958-7 (Version None)
Quarter: 2012Q2

REPORT INFORMATION
  Report Type: 
  Country: None (occurrence: None)
  Receive Date: 20120629
  Receipt Date: 20120625
  Transmission Date: 20120825
  Serious: Yes (Other)
  Sender: FDA-Public Use
  Company Number: US-PFIZER INC-2012147467

PATIENT
  Sex: Female
  Weight: 72.562 kg

DRUGS (4)
  1. LYRICA [Suspect]
     Indication: CHRONIC FATIGUE SYNDROME
     Dosage: 75 MG, 2X/DAY
     Dates: start: 20070601
  2. LYRICA [Suspect]
     Indication: FIBROMYALGIA
     Dosage: 75 MG, 3X/DAY
     Dates: end: 20070601
  3. VENLAFAXINE HCL [Suspect]
     Dosage: 75 MG, 3X/DAY
     Dates: end: 20070601
  4. VENLAFAXINE HCL [Suspect]
     Dosage: 75 MG, 2X/DAY
     Dates: start: 20070601

REACTIONS (6)
  - BREAST CANCER FEMALE [None]
  - PHARYNGEAL DISORDER [None]
  - GASTRIC DISORDER [None]
  - PAIN [None]
  - NAUSEA [None]
  - INAPPROPRIATE SCHEDULE OF DRUG ADMINISTRATION [None]
